FAERS Safety Report 20649154 (Version 2)
Quarter: 2022Q2

REPORT INFORMATION
  Report Type: Other
  Country: HR (occurrence: HR)
  Receive Date: 20220329
  Receipt Date: 20220401
  Transmission Date: 20220720
  Serious: Yes (Death)
  Sender: FDA-Public Use
  Company Number: HR-NOVARTISPH-NVSC2022HR070268

PATIENT

DRUGS (11)
  1. KYMRIAH [Suspect]
     Active Substance: TISAGENLECLEUCEL
     Indication: Product used for unknown indication
     Dosage: UNK, ONCE/SINGLE
     Route: 042
  2. RITUXIMAB [Suspect]
     Active Substance: RITUXIMAB
     Indication: Product used for unknown indication
     Dosage: UNK
     Route: 065
  3. GEMCITABINE [Concomitant]
     Active Substance: GEMCITABINE
     Indication: Product used for unknown indication
     Dosage: UNK
     Route: 065
  4. ETOPOSIDE [Concomitant]
     Active Substance: ETOPOSIDE
     Indication: Product used for unknown indication
     Dosage: UNK
     Route: 065
  5. CISPLATIN [Concomitant]
     Active Substance: CISPLATIN
     Indication: Product used for unknown indication
     Dosage: UNK
     Route: 065
  6. CYTARABINE [Concomitant]
     Active Substance: CYTARABINE
     Indication: Product used for unknown indication
     Dosage: UNK
     Route: 065
  7. IBRUTINIB [Concomitant]
     Active Substance: IBRUTINIB
     Indication: Product used for unknown indication
     Dosage: UNK
     Route: 065
  8. ACALABRUTINIB [Concomitant]
     Active Substance: ACALABRUTINIB
     Indication: Product used for unknown indication
     Dosage: UNK
     Route: 065
  9. BENDAMUSTINE [Concomitant]
     Active Substance: BENDAMUSTINE
     Indication: Product used for unknown indication
     Dosage: UNK
     Route: 065
  10. BRENTUXIMAB [Concomitant]
     Active Substance: BRENTUXIMAB
     Indication: Product used for unknown indication
     Route: 065
  11. LENALIDOMIDE [Concomitant]
     Active Substance: LENALIDOMIDE
     Indication: Product used for unknown indication
     Dosage: UNK
     Route: 065

REACTIONS (1)
  - Toxicity to various agents [Fatal]
